FAERS Safety Report 10026985 (Version 2)
Quarter: 2014Q2

REPORT INFORMATION
  Report Type: Spontaneous
  Country: IT (occurrence: None)
  Receive Date: 20140318
  Receipt Date: 20140403
  Transmission Date: 20141212
  Serious: Yes (Other)
  Sender: FDA-Public Use
  Company Number: AUR-APL-2014-02740

PATIENT
  Age: 91 Year
  Sex: Female

DRUGS (4)
  1. MIRTAZAPINE [Suspect]
     Indication: DEPRESSION
     Route: 048
     Dates: start: 20140201, end: 20140203
  2. CARDIOASPIRIN (ACETYLSALICYLIC ACID) [Concomitant]
  3. BISOPROLOL [Concomitant]
  4. METFORMIN (METFORMIN) [Concomitant]

REACTIONS (6)
  - Agitation [None]
  - Confusional state [None]
  - Protrusion tongue [None]
  - Sedation [None]
  - Tremor [None]
  - Pressure of speech [None]
